FAERS Safety Report 10232965 (Version 1)
Quarter: 2014Q2

REPORT INFORMATION
  Report Type: Spontaneous
  Country: JP (occurrence: JP)
  Receive Date: 20140612
  Receipt Date: 20140612
  Transmission Date: 20141212
  Serious: Yes (Life-Threatening, Hospitalization, Other)
  Sender: FDA-Public Use
  Company Number: JP-B.I. PHARMACEUTICALS,INC./RIDGEFIELD-2014-BI-25926BP

PATIENT
  Age: 61 Year
  Sex: Female
  Weight: 53 kg

DRUGS (15)
  1. MICARDIS [Suspect]
     Indication: HYPERTENSION
     Dosage: 40 MG
     Route: 048
     Dates: start: 20080620, end: 20100906
  2. PLACEBO [Suspect]
     Indication: RHEUMATOID ARTHRITIS
     Dosage: 0 MG
     Route: 048
     Dates: start: 20100215, end: 20100630
  3. METHOTREXATE SODIUM [Suspect]
     Indication: RHEUMATOID ARTHRITIS
     Dosage: 12.5 MG
     Route: 048
     Dates: start: 20070730, end: 20090303
  4. METHOTREXATE SODIUM [Suspect]
     Dosage: 15 MG
     Route: 048
     Dates: start: 20090303, end: 20091215
  5. METHOTREXATE SODIUM [Suspect]
     Dosage: 10 MG
     Route: 048
     Dates: start: 20091221, end: 20100628
  6. NORVASC [Suspect]
     Indication: PRODUCT USED FOR UNKNOWN INDICATION
     Dosage: 5 MG
     Route: 048
     Dates: start: 20091024
  7. FOLIAMIN [Suspect]
     Indication: RHEUMATOID ARTHRITIS
     Dosage: 5 MG
     Route: 048
     Dates: start: 20090826, end: 20100629
  8. ALFAROL [Suspect]
     Indication: OSTEOPOROSIS
     Dosage: 0.25 MCG
     Route: 048
     Dates: start: 20041028
  9. OMEPRAL [Suspect]
     Indication: GASTRITIS
     Dosage: 10 MG
     Route: 048
     Dates: start: 20070629
  10. METHYCOBAL [Suspect]
     Indication: MENIERE^S DISEASE
     Route: 048
     Dates: start: 2008
  11. ADETPHOS [Suspect]
     Indication: MENIERE^S DISEASE
     Dosage: FORMULATION : GRANULES
     Route: 048
     Dates: start: 2008
  12. CEPHADOL [Suspect]
     Indication: MENIERE^S DISEASE
     Route: 048
     Dates: start: 2008
  13. HYALEIN [Suspect]
     Indication: DRY EYE
     Dosage: FORMULATION : EYE DROP
     Route: 031
     Dates: start: 2009
  14. CRAVIT [Suspect]
     Indication: CONJUNCTIVITIS ALLERGIC
     Dosage: FORMULATION : EYE DROPS
     Route: 031
     Dates: start: 2009
  15. FLUMETHOLON [Suspect]
     Indication: CONJUNCTIVITIS ALLERGIC
     Dosage: FORMULATION : EYE DROPS
     Route: 031
     Dates: start: 2009

REACTIONS (1)
  - Basal cell carcinoma [Not Recovered/Not Resolved]
